FAERS Safety Report 5314430-7 (Version None)
Quarter: 2007Q2

REPORT INFORMATION
  Report Type: 
  Country: None (occurrence: None)
  Receive Date: 20070430
  Receipt Date: 20070430
  Transmission Date: 20071010
  Serious: Yes (Hospitalization)
  Sender: FDA-Public Use
  Company Number: None

PATIENT
  Age: 52 Year
  Sex: Male
  Weight: 141.5223 kg

DRUGS (1)
  1. NAFCILLIN SODIUM [Suspect]
     Indication: BACTERAEMIA
     Dosage: 2 MG Q 4? IV
     Route: 042
     Dates: start: 20060724, end: 20060816

REACTIONS (1)
  - RENAL FAILURE ACUTE [None]
